FAERS Safety Report 17109427 (Version 1)
Quarter: 2019Q4

REPORT INFORMATION
  Report Type: Spontaneous
  Country: SE (occurrence: SE)
  Receive Date: 20191204
  Receipt Date: 20191204
  Transmission Date: 20200122
  Serious: Yes (Other)
  Sender: FDA-Public Use
  Company Number: SE-TEVA-2019-SE-1145363

PATIENT
  Age: 28 Year
  Sex: Female

DRUGS (8)
  1. ZOPICLONE [Suspect]
     Active Substance: ZOPICLONE
     Dosage: 22.5 MG
     Route: 048
     Dates: start: 20180601, end: 20180601
  2. PARAFLEX [Suspect]
     Active Substance: CHLORZOXAZONE
     Dosage: 2 G
     Route: 048
     Dates: start: 20180601, end: 20180601
  3. LERGIGAN (PROMETHAZINE HYDROCHLORIDE) [Suspect]
     Active Substance: PROMETHAZINE HYDROCHLORIDE
     Dosage: 400 MG
     Route: 048
     Dates: start: 20180601, end: 20180601
  4. FLUOXETINE [Suspect]
     Active Substance: FLUOXETINE HYDROCHLORIDE
     Dosage: 80 MG
     Route: 048
     Dates: start: 20180601, end: 20180601
  5. LAMOTRIGINE. [Suspect]
     Active Substance: LAMOTRIGINE
     Dosage: 600 MG
     Route: 048
     Dates: start: 20180601, end: 20180601
  6. FOLIC ACID HYDRATE (FOLIC ACID) [Suspect]
     Active Substance: FOLIC ACID
     Dosage: 4 ST
     Route: 048
     Dates: start: 20180601, end: 20180601
  7. ALIMEMAZINE [Suspect]
     Active Substance: TRIMEPRAZINE
     Dosage: 480 MG
     Route: 048
     Dates: start: 20180601, end: 20180601
  8. MELATONIN [Suspect]
     Active Substance: MELATONIN
     Dosage: 40 MG
     Route: 048
     Dates: start: 20180601, end: 20180601

REACTIONS (4)
  - Fatigue [Unknown]
  - Intentional overdose [Unknown]
  - Hypertension [Unknown]
  - Intentional self-injury [Unknown]

NARRATIVE: CASE EVENT DATE: 20180601
